FAERS Safety Report 8476905 (Version 3)
Quarter: 2017Q3

REPORT INFORMATION
  Report Type: Report from Study
  Country: JP (occurrence: JP)
  Receive Date: 20120326
  Receipt Date: 20170908
  Transmission Date: 20171128
  Serious: Yes (Hospitalization, Other)
  Sender: FDA-Public Use
  Company Number: JP-BRISTOL-MYERS SQUIBB COMPANY-16458499

PATIENT
  Age: 35 Year
  Sex: Female

DRUGS (1)
  1. DASATINIB [Suspect]
     Active Substance: DASATINIB
     Indication: ACUTE LYMPHOCYTIC LEUKAEMIA
     Dosage: 40 MG, QD
     Route: 065
     Dates: start: 201002, end: 201101

REACTIONS (3)
  - Cytomegalovirus enterocolitis [Recovered/Resolved]
  - Acute graft versus host disease [Recovering/Resolving]
  - Cytomegalovirus hepatitis [Unknown]

NARRATIVE: CASE EVENT DATE: 201009
